FAERS Safety Report 18381122 (Version 26)
Quarter: 2024Q4

REPORT INFORMATION
  Report Type: Report from Study
  Country: US (occurrence: US)
  Receive Date: 20201014
  Receipt Date: 20241030
  Transmission Date: 20250114
  Serious: Yes (Hospitalization, Other)
  Sender: AEGERION
  Company Number: US-AMRYT PHARMACEUTICALS DAC-AEGR004913

PATIENT
  Sex: Male
  Weight: 68.481 kg

DRUGS (68)
  1. METRELEPTIN [Suspect]
     Active Substance: METRELEPTIN
     Indication: Lipodystrophy acquired
     Dosage: 2.5 MG, QD
     Route: 058
     Dates: start: 20140905, end: 20220805
  2. METRELEPTIN [Suspect]
     Active Substance: METRELEPTIN
     Dosage: 5 MILLIGRAM, QD
     Dates: start: 20220805, end: 20220907
  3. METRELEPTIN [Suspect]
     Active Substance: METRELEPTIN
     Dosage: 5 MILLIGRAM, BID
     Dates: start: 20220907, end: 20240308
  4. METRELEPTIN [Suspect]
     Active Substance: METRELEPTIN
     Dosage: 5 MILLIGRAM, QD
     Dates: start: 20240309
  5. CETIRIZINE HYDROCHLORIDE [Concomitant]
     Active Substance: CETIRIZINE HYDROCHLORIDE
     Indication: Urticaria
     Dosage: 10 MG, BID
     Route: 048
     Dates: start: 20151113
  6. DIPHENHYDRAMINE [Concomitant]
     Active Substance: DIPHENHYDRAMINE
     Indication: Pruritus
     Dosage: 25 MG, PRN
     Route: 042
     Dates: start: 20151104, end: 20151106
  7. DIPHENHYDRAMINE [Concomitant]
     Active Substance: DIPHENHYDRAMINE
     Indication: Urticaria
     Dosage: 25 MG, PRN
     Route: 048
     Dates: start: 2017
  8. DIPHENHYDRAMINE [Concomitant]
     Active Substance: DIPHENHYDRAMINE
     Indication: Infusion
     Dosage: 50 MILLIGRAM, ONCE
     Route: 048
     Dates: start: 20201120, end: 20201120
  9. DIPHENHYDRAMINE [Concomitant]
     Active Substance: DIPHENHYDRAMINE
     Dosage: 50 MILLIGRAM, PRN 4-6 HRS
     Route: 048
     Dates: start: 20160220, end: 20220228
  10. DIPHENHYDRAMINE [Concomitant]
     Active Substance: DIPHENHYDRAMINE
     Dosage: 50 MILLIGRAM, PRN
     Route: 048
     Dates: start: 20220301, end: 20220805
  11. DIPHENHYDRAMINE [Concomitant]
     Active Substance: DIPHENHYDRAMINE
     Dosage: 50 MILLIGRAM, OD PRN
     Route: 048
     Dates: start: 20240801
  12. PREDNISONE [Concomitant]
     Active Substance: PREDNISONE
     Indication: Viral infection
     Dosage: 5 MG, AS INSTRUCTED
     Route: 048
     Dates: start: 20141230, end: 20150104
  13. PREDNISONE [Concomitant]
     Active Substance: PREDNISONE
     Indication: Autoimmune hepatitis
     Dosage: 10 MG, QD
     Route: 048
     Dates: start: 20150909, end: 20161013
  14. PREDNISONE [Concomitant]
     Active Substance: PREDNISONE
     Dosage: 15 MG, QD
     Route: 048
     Dates: start: 20161014, end: 20171004
  15. PREDNISONE [Concomitant]
     Active Substance: PREDNISONE
     Dosage: 5 MG, QD
     Dates: start: 20171005, end: 202003
  16. PREDNISONE [Concomitant]
     Active Substance: PREDNISONE
     Dosage: 10 MILLIGRAM
  17. ERGOCALCIFEROL [Concomitant]
     Active Substance: ERGOCALCIFEROL
     Indication: Vitamin D deficiency
     Dosage: 1 CAPSULE QW
     Route: 048
     Dates: start: 20170914
  18. MELATONIN [Concomitant]
     Active Substance: MELATONIN
     Indication: Sleep disorder
     Dosage: 3 MG, QD
     Route: 048
     Dates: start: 2009
  19. ATOMOXETINE [Concomitant]
     Active Substance: ATOMOXETINE HYDROCHLORIDE
     Indication: Attention deficit hyperactivity disorder
     Dosage: 25 MG, QD
     Route: 048
     Dates: start: 201206, end: 20150920
  20. ZANTAC [Concomitant]
     Active Substance: RANITIDINE HYDROCHLORIDE
     Indication: Urticaria
     Dosage: 150 MG, PRN
     Route: 048
     Dates: start: 20131227, end: 20150920
  21. AZITHROMYCIN [Concomitant]
     Active Substance: AZITHROMYCIN
     Indication: Viral infection
     Dosage: 1 PACK AS INSTRUCTED
     Route: 048
     Dates: start: 20141230, end: 20150103
  22. COMPAZINE                          /00013302/ [Concomitant]
     Indication: Arthroscopy
     Dosage: 5 MG, PRN
     Route: 042
     Dates: start: 20151104, end: 20151106
  23. MORPHINE [Concomitant]
     Active Substance: MORPHINE
     Indication: Arthroscopy
     Dosage: 1.4 MG, PRN
     Route: 042
     Dates: start: 20151104, end: 20151106
  24. MORPHINE [Concomitant]
     Active Substance: MORPHINE
     Dosage: UNK
  25. FENTANYL [Concomitant]
     Active Substance: FENTANYL
     Indication: Arthroscopy
     Dosage: 50 ?G, PRN
     Route: 042
     Dates: start: 20161104, end: 20161106
  26. NORCO [Concomitant]
     Active Substance: ACETAMINOPHEN\HYDROCODONE BITARTRATE
     Indication: Arthroscopy
     Dosage: 5-325 MG, PRN
     Route: 048
     Dates: start: 20151104, end: 20161104
  27. CEFAZOLIN [Concomitant]
     Active Substance: CEFAZOLIN
     Indication: Arthroscopy
     Dosage: 2000 MG, QD
     Route: 042
     Dates: start: 20151104, end: 20151104
  28. TAZORAC [Concomitant]
     Active Substance: TAZAROTENE
     Indication: Viral skin infection
     Dosage: 1 DF, QD
     Route: 061
     Dates: start: 20161014, end: 2016
  29. METFORMIN HYDROCHLORIDE [Concomitant]
     Active Substance: METFORMIN HYDROCHLORIDE
     Indication: Product used for unknown indication
     Dosage: 500 MG, TABLET
     Route: 048
  30. VITAMIN D2 [Concomitant]
     Active Substance: ERGOCALCIFEROL
     Indication: Product used for unknown indication
     Dosage: 2000 UNITS, TABLET
     Route: 048
  31. EPIPEN [Concomitant]
     Active Substance: EPINEPHRINE
     Indication: Product used for unknown indication
     Dosage: 0.3 MG/0.3 AUTO INJCT
  32. AMIODARONE HYDROCHLORIDE [Concomitant]
     Active Substance: AMIODARONE HYDROCHLORIDE
     Indication: Product used for unknown indication
     Dosage: 100 MG, TABLET
     Route: 048
  33. ZYRTEC [Concomitant]
     Active Substance: CETIRIZINE HYDROCHLORIDE
     Indication: Product used for unknown indication
     Dosage: 10 MG, CAPSULE
     Route: 048
  34. BACTERIOSTATIC WATER [Concomitant]
     Active Substance: WATER
     Indication: Product used for unknown indication
  35. PROPOFOL [Concomitant]
     Active Substance: PROPOFOL
     Indication: Biopsy bone marrow
     Dosage: 10 MG/ML, ONCE
     Route: 042
     Dates: start: 20201109, end: 20201109
  36. PHENYLEPHRINE [Concomitant]
     Active Substance: PHENYLEPHRINE HYDROCHLORIDE
     Indication: Biopsy bone marrow
     Dosage: 1 MILLIGRAM, ONCE
     Route: 042
     Dates: start: 20201109, end: 20201109
  37. EPHEDRINE [Concomitant]
     Active Substance: EPHEDRINE
     Indication: Biopsy bone marrow
     Dosage: 50 MG/ML, ONCE
     Route: 042
     Dates: start: 20201109, end: 20201109
  38. MIDAZOLAM [Concomitant]
     Active Substance: MIDAZOLAM
     Indication: Biopsy bone marrow
     Dosage: 1 MG/ML, ONCE
     Route: 042
     Dates: start: 20201109, end: 20201109
  39. INSULIN GLARGINE [Concomitant]
     Active Substance: INSULIN GLARGINE
     Indication: Diabetes mellitus
     Dosage: 16 INTERNATIONAL UNIT, BID
     Route: 058
     Dates: start: 20210805, end: 20210902
  40. INSULIN GLARGINE [Concomitant]
     Active Substance: INSULIN GLARGINE
     Dosage: 80 INTERNATIONAL UNIT, QD
     Route: 058
     Dates: start: 20210903, end: 20210903
  41. INSULIN GLARGINE [Concomitant]
     Active Substance: INSULIN GLARGINE
     Dosage: 40 INTERNATIONAL UNIT, BID
     Route: 058
  42. INSULIN GLARGINE [Concomitant]
     Active Substance: INSULIN GLARGINE
     Dosage: 80 INTERNATIONAL UNIT, BID
     Route: 058
     Dates: start: 20211027, end: 20220111
  43. INSULIN GLARGINE [Concomitant]
     Active Substance: INSULIN GLARGINE
     Dosage: 80 INTERNATIONAL UNIT
     Route: 058
     Dates: start: 20210903, end: 20211012
  44. INSULIN GLARGINE [Concomitant]
     Active Substance: INSULIN GLARGINE
     Dosage: 80 INTERNATIONAL UNIT, BID
     Route: 058
     Dates: start: 20211012, end: 20211027
  45. INSULIN GLARGINE [Concomitant]
     Active Substance: INSULIN GLARGINE
     Dosage: 60 INTERNATIONAL UNIT, QOD
     Route: 058
     Dates: start: 20220111, end: 20220228
  46. INSULIN GLARGINE [Concomitant]
     Active Substance: INSULIN GLARGINE
     Dosage: 40 INTERNATIONAL UNIT, BID
     Route: 058
     Dates: start: 20220228, end: 20220318
  47. INSULIN GLARGINE [Concomitant]
     Active Substance: INSULIN GLARGINE
     Dosage: 35 INTERNATIONAL UNIT, BID
     Route: 058
     Dates: start: 20220805, end: 20230203
  48. INSULIN GLARGINE [Concomitant]
     Active Substance: INSULIN GLARGINE
     Dosage: 60 INTERNATIONAL UNIT, ONCQ AT BED TIME
     Route: 058
     Dates: start: 20230203
  49. BENZTROPINE [Concomitant]
     Active Substance: BENZTROPINE
     Indication: Mental disorder
     Dosage: 0.5 MILLIGRAM, BID
     Route: 048
     Dates: start: 20200804, end: 20201105
  50. SULFAMETHOXAZOLE AND TRIMETHOPRIM [Concomitant]
     Active Substance: SULFAMETHOXAZOLE\TRIMETHOPRIM
     Indication: Platelet count decreased
     Dosage: 1 DOSAGE FORM 3 DAYS A WEEK
     Route: 048
     Dates: start: 20200807, end: 20210208
  51. SULFAMETHOXAZOLE AND TRIMETHOPRIM [Concomitant]
     Active Substance: SULFAMETHOXAZOLE\TRIMETHOPRIM
     Dosage: 1 TABLET, THREE TIMES A WEEK
     Dates: start: 20220224, end: 20220228
  52. GRANIX [Concomitant]
     Active Substance: TBO-FILGRASTIM
     Indication: Pancytopenia
     Dosage: 300 UG, QD
     Route: 058
     Dates: start: 20201026, end: 20210527
  53. INSULIN ASPART [Concomitant]
     Active Substance: INSULIN ASPART
     Indication: Diabetes mellitus
     Dosage: 2 INTERNATIONAL UNIT, TID
     Route: 058
     Dates: start: 20200805, end: 20210408
  54. INSULIN ASPART [Concomitant]
     Active Substance: INSULIN ASPART
     Dosage: 16 INTERNATIONAL UNIT, BID
     Route: 058
     Dates: start: 20210409, end: 20210816
  55. INSULIN ASPART [Concomitant]
     Active Substance: INSULIN ASPART
     Dosage: 30 INTERNATIONAL UNIT, QID
     Route: 058
     Dates: start: 20210817, end: 20211012
  56. INSULIN ASPART [Concomitant]
     Active Substance: INSULIN ASPART
     Dosage: 60 INTERNATIONAL UNIT, TID
     Route: 058
     Dates: start: 20211012, end: 20220228
  57. INSULIN ASPART [Concomitant]
     Active Substance: INSULIN ASPART
     Dosage: 30 INTERNATIONAL UNIT, TID
     Route: 058
     Dates: start: 20220228, end: 20220318
  58. INSULIN ASPART [Concomitant]
     Active Substance: INSULIN ASPART
     Dosage: 45 INTERNATIONAL UNIT, TID
     Route: 058
     Dates: start: 20220318, end: 20220801
  59. INSULIN ASPART [Concomitant]
     Active Substance: INSULIN ASPART
     Dosage: 24 INTERNATIONAL UNIT, TID
     Route: 058
     Dates: start: 20220801, end: 20230125
  60. LIDOCAINE [Concomitant]
     Active Substance: LIDOCAINE
     Indication: Biopsy bone marrow
     Dosage: 1 DOSAGE FORM ONCE
     Route: 058
     Dates: start: 20201109, end: 20201109
  61. TYLENOL [Concomitant]
     Active Substance: ACETAMINOPHEN
     Indication: Infusion
     Dosage: 650 MILLIGRAM, ONCE
     Route: 048
     Dates: start: 20201120, end: 20201120
  62. FILGRASTIM [Concomitant]
     Active Substance: FILGRASTIM
     Indication: Neutropenia
     Dosage: 180 UG, QD
     Route: 058
     Dates: start: 20210108, end: 20211008
  63. FILGRASTIM [Concomitant]
     Active Substance: FILGRASTIM
     Dosage: 300 MICROGRAM
     Route: 058
     Dates: start: 20211009
  64. RIFAXIMIN [Concomitant]
     Active Substance: RIFAXIMIN
     Indication: Ammonia increased
     Dosage: 550 MILLIGRAM, BID
     Route: 048
     Dates: start: 20210831
  65. FERROUS SULFATE [Concomitant]
     Active Substance: FERROUS SULFATE
     Indication: Anaemia
     Dosage: 325 MILLIGRAM, QOD
     Route: 048
     Dates: start: 20201015, end: 20240527
  66. FERROUS SULFATE [Concomitant]
     Active Substance: FERROUS SULFATE
     Indication: Pancytopenia
  67. NOVOLOG [Concomitant]
     Active Substance: INSULIN ASPART
     Indication: Diabetes mellitus
     Dosage: 30 INTERNATIONAL UNIT, TID
     Route: 058
  68. LACTULOSE [Concomitant]
     Active Substance: LACTULOSE
     Indication: Autoimmune hepatitis
     Dosage: 20 GRAM, TID
     Route: 048
     Dates: start: 20200805

REACTIONS (30)
  - Haematemesis [Recovered/Resolved]
  - Mental status changes [Recovered/Resolved]
  - Gastric varices [Unknown]
  - Gastrointestinal haemorrhage [Unknown]
  - Hepatic encephalopathy [Unknown]
  - Hospitalisation [Unknown]
  - Pancytopenia [Not Recovered/Not Resolved]
  - Gastrointestinal haemorrhage [Recovered/Resolved]
  - Vomiting [Recovered/Resolved]
  - Anaemia [Recovered/Resolved]
  - COVID-19 [Recovered/Resolved]
  - Metabolic encephalopathy [Recovered/Resolved]
  - Extradural abscess [Recovered/Resolved with Sequelae]
  - Neutropenia [Recovered/Resolved]
  - Febrile neutropenia [Recovered/Resolved with Sequelae]
  - Hyperglycaemia [Not Recovered/Not Resolved]
  - Hypertriglyceridaemia [Not Recovered/Not Resolved]
  - Hyperammonaemia [Not Recovered/Not Resolved]
  - Lactic acidosis [Not Recovered/Not Resolved]
  - Hospitalisation [Unknown]
  - Joint swelling [Not Recovered/Not Resolved]
  - Osteonecrosis [Not Recovered/Not Resolved]
  - Haematemesis [Recovered/Resolved]
  - Type 1 diabetes mellitus [Not Recovered/Not Resolved]
  - Adrenal insufficiency [Not Recovered/Not Resolved]
  - Zinc deficiency [Not Recovered/Not Resolved]
  - Nasal congestion [Unknown]
  - Cough [Unknown]
  - Malaise [Unknown]
  - Fatigue [Unknown]

NARRATIVE: CASE EVENT DATE: 20200101
